FAERS Safety Report 19928307 (Version 1)
Quarter: 2021Q4

REPORT INFORMATION
  Report Type: Spontaneous
  Country: US (occurrence: US)
  Receive Date: 20211006
  Receipt Date: 20211006
  Transmission Date: 20220303
  Serious: Yes (unspecified)
  Sender: FDA-Public Use
  Company Number: None

PATIENT
  Age: 52 Year
  Sex: Female
  Weight: 78.75 kg

DRUGS (3)
  1. BENADRYL [Suspect]
     Active Substance: DIPHENHYDRAMINE HYDROCHLORIDE
     Indication: Seasonal allergy
     Dosage: ?          QUANTITY:1 CAPSULE(S);
     Route: 048
  2. INFLUENZA VIRUS VACCINE [Concomitant]
     Active Substance: INFLUENZA VIRUS VACCINE
  3. MINERALS\VITAMINS [Concomitant]
     Active Substance: MINERALS\VITAMINS

REACTIONS (13)
  - Somnolence [None]
  - Urine flow decreased [None]
  - Dizziness [None]
  - Nausea [None]
  - Syncope [None]
  - Lethargy [None]
  - Headache [None]
  - Musculoskeletal stiffness [None]
  - Drug interaction [None]
  - Fall [None]
  - Loss of consciousness [None]
  - Blood pressure decreased [None]
  - Hypoaesthesia [None]

NARRATIVE: CASE EVENT DATE: 20211006
